FAERS Safety Report 20475620 (Version 1)
Quarter: 2022Q1

REPORT INFORMATION
  Report Type: Spontaneous
  Country: US (occurrence: None)
  Receive Date: 20220215
  Receipt Date: 20220215
  Transmission Date: 20220423
  Serious: Yes (Other)
  Sender: FDA-Public Use
  Company Number: 2022A062798

PATIENT
  Age: 15743 Day
  Sex: Female
  Weight: 54.4 kg

DRUGS (3)
  1. EVUSHELD [Suspect]
     Active Substance: CILGAVIMAB\TIXAGEVIMAB
     Indication: Immunosuppression
     Dosage: 150 MG OF TIXAGEVIMAB AND 150 MG OF CILGAVIMAB150.0MG ONCE/SINGLE ADMINISTRATION
     Route: 030
     Dates: start: 20220129
  2. EVUSHELD [Suspect]
     Active Substance: CILGAVIMAB\TIXAGEVIMAB
     Indication: Sarcoidosis
     Dosage: 150 MG OF TIXAGEVIMAB AND 150 MG OF CILGAVIMAB150.0MG ONCE/SINGLE ADMINISTRATION
     Route: 030
     Dates: start: 20220129
  3. EVUSHELD [Suspect]
     Active Substance: CILGAVIMAB\TIXAGEVIMAB
     Indication: Psoriatic arthropathy
     Dosage: 150 MG OF TIXAGEVIMAB AND 150 MG OF CILGAVIMAB150.0MG ONCE/SINGLE ADMINISTRATION
     Route: 030
     Dates: start: 20220129

REACTIONS (9)
  - Hypersensitivity [Recovered/Resolved]
  - Tongue pruritus [Recovered/Resolved]
  - Throat irritation [Recovered/Resolved]
  - Heart rate increased [Recovered/Resolved]
  - Dyspnoea [Recovered/Resolved]
  - Palpitations [Recovered/Resolved]
  - Chest pain [Recovered/Resolved]
  - Nausea [Recovered/Resolved]
  - Ischaemia [Recovered/Resolved]

NARRATIVE: CASE EVENT DATE: 20220129
